FAERS Safety Report 12144440 (Version 2)
Quarter: 2019Q3

REPORT INFORMATION
  Report Type: Spontaneous
  Country: US (occurrence: US)
  Receive Date: 20160304
  Receipt Date: 20190920
  Transmission Date: 20191004
  Serious: No
  Sender: FDA-Public Use
  Company Number: US-PFIZER INC-2016122899

PATIENT
  Age: 85 Year
  Sex: Male
  Weight: 71.67 kg

DRUGS (3)
  1. ALPRAZOLAM. [Suspect]
     Active Substance: ALPRAZOLAM
     Indication: ANXIETY
     Dosage: 0.5 MG, 4X/DAY
  2. ASPIRIN. [Concomitant]
     Active Substance: ASPIRIN
     Indication: BLOOD VISCOSITY INCREASED
     Dosage: 81 MG, UNK
  3. ALPRAZOLAM. [Suspect]
     Active Substance: ALPRAZOLAM
     Dosage: 4X/DAY (3/4 OF 1MG FOUR TIMES DAILY)

REACTIONS (5)
  - Nervousness [Unknown]
  - Drug ineffective [Unknown]
  - Abnormal dreams [Unknown]
  - Palpitations [Not Recovered/Not Resolved]
  - Eye pain [Unknown]
